FAERS Safety Report 5142382-1 (Version None)
Quarter: 2006Q4

REPORT INFORMATION
  Report Type: 
  Country: None (occurrence: None)
  Receive Date: 20061102
  Receipt Date: 20061025
  Transmission Date: 20070319
  Serious: Yes (Other)
  Sender: FDA-Public Use
  Company Number: GB-GLAXOSMITHKLINE-B0444860A

PATIENT
  Age: 56 Year
  Sex: Male

DRUGS (4)
  1. MALARONE [Suspect]
     Indication: FOREIGN TRAVEL
     Dosage: 250MG UNKNOWN
     Route: 048
     Dates: start: 20060918, end: 20060919
  2. HEPATYRIX [Concomitant]
     Indication: FOREIGN TRAVEL
     Route: 030
     Dates: start: 20060731, end: 20060731
  3. REVAXIS [Concomitant]
     Indication: FOREIGN TRAVEL
     Route: 030
     Dates: start: 20060731, end: 20060731
  4. YELLOW FEVER VACCINE [Concomitant]
     Indication: FOREIGN TRAVEL
     Route: 058
     Dates: start: 20060901, end: 20060901

REACTIONS (4)
  - FEELING ABNORMAL [None]
  - MALAISE [None]
  - NAUSEA [None]
  - TREMOR [None]
